FAERS Safety Report 7279364-X (Version None)
Quarter: 2011Q1

REPORT INFORMATION
  Report Type: 
  Country: None (occurrence: None)
  Receive Date: 20110208
  Receipt Date: 20110119
  Transmission Date: 20110831
  Serious: No
  Sender: FDA-Public Use
  Company Number: US-B.I. PHARMACEUTICALS,INC./RIDGEFIELD-2011-BP-01901BP

PATIENT
  Age: 71 Year
  Sex: Female

DRUGS (4)
  1. ASMANEX TWISTHALER [Concomitant]
  2. ALBUTEROL [Concomitant]
     Dates: start: 20060101
  3. SPIRIVA [Suspect]
     Indication: CHRONIC OBSTRUCTIVE PULMONARY DISEASE
     Dosage: 18 MCG
     Route: 055
     Dates: start: 20060101
  4. OXYGEN [Concomitant]
     Dates: start: 20060101

REACTIONS (1)
  - DRUG INEFFECTIVE [None]
